FAERS Safety Report 14331229 (Version 3)
Quarter: 2018Q3

REPORT INFORMATION
  Report Type: Spontaneous
  Country: FR (occurrence: FR)
  Receive Date: 20171228
  Receipt Date: 20180806
  Transmission Date: 20181010
  Serious: Yes (Congenital Anomaly, Other)
  Sender: FDA-Public Use
  Company Number: FR-UCBSA-2017052364

PATIENT
  Age: 0 Year
  Sex: Male
  Weight: 3 kg

DRUGS (1)
  1. KEPPRA [Suspect]
     Active Substance: LEVETIRACETAM
     Indication: EPILEPSY
     Dosage: 500 MG?0?750 MG, 2X/DAY (BID)
     Route: 064
     Dates: start: 20170302, end: 20171116

REACTIONS (2)
  - Hypospadias [Not Recovered/Not Resolved]
  - Foetal exposure during pregnancy [Unknown]

NARRATIVE: CASE EVENT DATE: 20170302
